FAERS Safety Report 5514186-9 (Version None)
Quarter: 2007Q4

REPORT INFORMATION
  Report Type: 
  Country: None (occurrence: None)
  Receive Date: 20071113
  Receipt Date: 20071108
  Transmission Date: 20080405
  Serious: Yes (Hospitalization, Disabling, Other)
  Sender: FDA-Public Use
  Company Number: US-ALLERGAN-0711233US

PATIENT
  Sex: Female

DRUGS (7)
  1. BOTOX COSMETIC [Suspect]
     Indication: SKIN WRINKLING
     Dosage: 51 UNITS, SINGLE
     Route: 030
     Dates: start: 20070925, end: 20070925
  2. RESTYLANE [Suspect]
     Indication: SKIN WRINKLING
  3. LIDOCAINE [Suspect]
     Indication: PREMEDICATION
     Dosage: UNK, UNK
     Route: 061
     Dates: start: 20070925, end: 20070925
  4. BETACAINE [Concomitant]
     Indication: PREMEDICATION
     Route: 061
     Dates: start: 20070925, end: 20070925
  5. TETRACAINE POLYGYL STERILE OPHTHALMIC SOLUTION [Concomitant]
     Indication: PREMEDICATION
     Route: 061
     Dates: start: 20070925, end: 20070925
  6. MINOCIN [Concomitant]
     Indication: ACNE
     Dosage: 75 MG, UNK
     Route: 048
  7. MOTRIN [Concomitant]
     Indication: DRUG USE FOR UNKNOWN INDICATION
     Dosage: UNK, PRN
     Route: 048
     Dates: end: 20070923

REACTIONS (17)
  - ANXIETY [None]
  - BLOOD PRESSURE INCREASED [None]
  - CHILLS [None]
  - DEFAECATION URGENCY [None]
  - DIZZINESS [None]
  - FLUSHING [None]
  - HEART RATE INCREASED [None]
  - HYPERVENTILATION [None]
  - HYPOAESTHESIA [None]
  - INJECTION SITE HAEMORRHAGE [None]
  - MUSCLE SPASMS [None]
  - NAUSEA [None]
  - NERVOUSNESS [None]
  - PALPITATIONS [None]
  - SWOLLEN TONGUE [None]
  - TETANY [None]
  - TREMOR [None]
